FAERS Safety Report 5635433-9 (Version None)
Quarter: 2008Q1

REPORT INFORMATION
  Report Type: 
  Country: None (occurrence: None)
  Receive Date: 20080222
  Receipt Date: 20080208
  Transmission Date: 20080703
  Serious: Yes (Death)
  Sender: FDA-Public Use
  Company Number: IE-GENENTECH-256096

PATIENT
  Sex: Male

DRUGS (7)
  1. AVASTIN [Suspect]
     Indication: ADENOCARCINOMA
     Dosage: 750 MG, SINGLE
     Route: 042
     Dates: start: 20071218
  2. FLUOROURACIL [Suspect]
     Indication: ADENOCARCINOMA
     Dosage: UNK, SINGLE
     Route: 065
     Dates: start: 20071218
  3. FOLINIC ACID [Suspect]
     Indication: ADENOCARCINOMA
     Dosage: UNK, SINGLE
     Route: 065
     Dates: start: 20071218
  4. IRINOTECAN [Suspect]
     Indication: ADENOCARCINOMA
     Dosage: UNK, SINGLE
     Route: 065
     Dates: start: 20071218
  5. OXALIPLATIN [Suspect]
     Indication: ADENOCARCINOMA
     Dosage: UNK, SINGLE
     Route: 065
     Dates: start: 20071218
  6. CETUXIMAB [Concomitant]
     Indication: DRUG USE FOR UNKNOWN INDICATION
  7. RADIOTHERAPY [Concomitant]
     Indication: ADENOCARCINOMA
     Dosage: UNK, UNKNOWN
     Route: 065
     Dates: start: 20070601

REACTIONS (1)
  - SUDDEN DEATH [None]
